FAERS Safety Report 24382291 (Version 1)
Quarter: 2024Q4

REPORT INFORMATION
  Report Type: Report from Study
  Country: PK (occurrence: PK)
  Receive Date: 20241001
  Receipt Date: 20241001
  Transmission Date: 20250115
  Serious: Yes (Other)
  Sender: ROCHE
  Company Number: PK-ROCHE-10000090809

PATIENT
  Age: 56 Year
  Sex: Female

DRUGS (21)
  1. HERCEPTIN [Suspect]
     Active Substance: TRASTUZUMAB
     Indication: Breast cancer
     Route: 065
  2. HERCEPTIN [Suspect]
     Active Substance: TRASTUZUMAB
     Route: 058
     Dates: start: 20240911
  3. PERJETA [Suspect]
     Active Substance: PERTUZUMAB
     Indication: Breast cancer
     Route: 065
  4. DEXAMETHASONE [Concomitant]
     Active Substance: DEXAMETHASONE
  5. DEXAMETHASONE [Concomitant]
     Active Substance: DEXAMETHASONE
  6. GRAVINATE [DIMENHYDRINATE] [Concomitant]
  7. NEUROBION FORTE [Concomitant]
     Active Substance: CYANOCOBALAMIN\PYRIDOXINE HYDROCHLORIDE\THIAMINE DISULFIDE
  8. PHENIRAMINE MALEATE [Concomitant]
     Active Substance: PHENIRAMINE MALEATE
  9. PHENIRAMINE MALEATE [Concomitant]
     Active Substance: PHENIRAMINE MALEATE
  10. VALIUM [Concomitant]
     Active Substance: DIAZEPAM
  11. ONDANSETRON [Concomitant]
     Active Substance: ONDANSETRON
  12. ESPASEVIT [Concomitant]
  13. SODIUM CHLORIDE [Concomitant]
     Active Substance: SODIUM CHLORIDE
  14. SODIUM CHLORIDE [Concomitant]
     Active Substance: SODIUM CHLORIDE
  15. CIPROFLOXACIN [Concomitant]
     Active Substance: CIPROFLOXACIN
  16. CYCLOMID [Concomitant]
  17. DOCETAXEL [Concomitant]
     Active Substance: DOCETAXEL
  18. ESOMEPRAZOLE [Concomitant]
     Active Substance: ESOMEPRAZOLE
  19. FILGRASTIM [Concomitant]
     Active Substance: FILGRASTIM
     Dosage: 300 MCG
  20. PROCHLORPERAZINE [Concomitant]
     Active Substance: PROCHLORPERAZINE
  21. MESNA [Concomitant]
     Active Substance: MESNA

REACTIONS (1)
  - Metastasis [Unknown]

NARRATIVE: CASE EVENT DATE: 20240911
